FAERS Safety Report 12718108 (Version 1)
Quarter: 2016Q3

REPORT INFORMATION
  Report Type: Spontaneous
  Country: US (occurrence: US)
  Receive Date: 20160906
  Receipt Date: 20160906
  Transmission Date: 20161109
  Serious: No
  Sender: FDA-Public Use
  Company Number: US-ASTRAZENECA-2016SE88312

PATIENT
  Age: 32 Year
  Sex: Male

DRUGS (1)
  1. PRILOSEC OTC [Suspect]
     Active Substance: OMEPRAZOLE MAGNESIUM
     Indication: DYSPEPSIA
     Route: 048
     Dates: start: 20160813, end: 20160814

REACTIONS (5)
  - Condition aggravated [Recovering/Resolving]
  - Gastrointestinal pain [Recovering/Resolving]
  - Expired product administered [Unknown]
  - Abdominal pain upper [Recovering/Resolving]
  - Drug ineffective [Unknown]
